FAERS Safety Report 8205532-6 (Version None)
Quarter: 2012Q1

REPORT INFORMATION
  Report Type: 
  Country: None (occurrence: None)
  Receive Date: 20120313
  Receipt Date: 20120227
  Transmission Date: 20120608
  Serious: Yes (Other)
  Sender: FDA-Public Use
  Company Number: US-WATSON-2012-03890

PATIENT
  Age: 78 Year
  Sex: Male
  Weight: 84.5 kg

DRUGS (1)
  1. OXYCODONE HCL AND ACETAMINOPHEN [Suspect]
     Indication: PAIN
     Dosage: 5-10/500 MG

REACTIONS (2)
  - AGITATION [None]
  - DELIRIUM [None]
